FAERS Safety Report 18229080 (Version 2)
Quarter: 2020Q4

REPORT INFORMATION
  Report Type: Spontaneous
  Country: JP (occurrence: JP)
  Receive Date: 20200903
  Receipt Date: 20201005
  Transmission Date: 20210113
  Serious: Yes (Death, Hospitalization, Other)
  Sender: FDA-Public Use
  Company Number: NVSJ2020JP005552

PATIENT
  Age: 75 Year
  Sex: Male
  Weight: 43 kg

DRUGS (9)
  1. VOTRIENT [Suspect]
     Active Substance: PAZOPANIB HYDROCHLORIDE
     Indication: ANGIOSARCOMA
     Dosage: 400 MG, BID
     Route: 048
     Dates: start: 20181211, end: 20190104
  2. HYDROMORPHONE HYDROCHLORIDE. [Concomitant]
     Active Substance: HYDROMORPHONE HYDROCHLORIDE
     Indication: PAIN
     Dosage: 4 MG/DAY
     Route: 048
     Dates: start: 20190312, end: 20190322
  3. NEXIUM [Concomitant]
     Active Substance: ESOMEPRAZOLE MAGNESIUM
     Indication: GASTRITIS
     Dosage: 20 MG
     Route: 048
     Dates: start: 20181105, end: 20190312
  4. VOTRIENT [Suspect]
     Active Substance: PAZOPANIB HYDROCHLORIDE
     Dosage: 600 MG
     Route: 048
     Dates: start: 20190104, end: 20190122
  5. VOTRIENT [Suspect]
     Active Substance: PAZOPANIB HYDROCHLORIDE
     Dosage: 400 MG
     Route: 048
     Dates: start: 20190415, end: 20190917
  6. HYDROMORPHONE HYDROCHLORIDE. [Concomitant]
     Active Substance: HYDROMORPHONE HYDROCHLORIDE
     Indication: PAIN
     Dosage: 1 MG AS NEEDED
     Route: 048
     Dates: start: 20181203
  7. VOTRIENT [Suspect]
     Active Substance: PAZOPANIB HYDROCHLORIDE
     Dosage: 400 MG
     Route: 048
     Dates: start: 20190219, end: 20190314
  8. CELECOX [Concomitant]
     Active Substance: CELECOXIB
     Indication: PAIN
     Dosage: 200 MG/DAY
     Route: 048
     Dates: start: 20181105, end: 20181217
  9. URSODEOXYCHOLIC ACID [Concomitant]
     Active Substance: URSODIOL
     Indication: LIVER DISORDER
     Dosage: 150 MG/DAY
     Route: 048
     Dates: start: 20181211, end: 20190304

REACTIONS (24)
  - Pyrexia [Fatal]
  - Abdominal pain [Unknown]
  - Pallor [Unknown]
  - Haemorrhagic ascites [Unknown]
  - Pyrexia [Unknown]
  - Anaemia [Not Recovered/Not Resolved]
  - Intestinal metastasis [Fatal]
  - Ascites [Fatal]
  - Malignant ascites [Fatal]
  - Cold sweat [Unknown]
  - Tumour associated fever [Fatal]
  - Dyspnoea [Fatal]
  - Pain [Fatal]
  - Inflammation [Unknown]
  - Intestinal perforation [Recovering/Resolving]
  - Angiosarcoma [Fatal]
  - Malignant neoplasm progression [Fatal]
  - Abdominal tenderness [Unknown]
  - Intestinal perforation [Recovered/Resolved]
  - Diarrhoea [Unknown]
  - Cholecystitis acute [Recovering/Resolving]
  - Gallbladder enlargement [Unknown]
  - Peritonitis [Unknown]
  - Metastases to spleen [Unknown]

NARRATIVE: CASE EVENT DATE: 20190314
